FAERS Safety Report 7815108-8 (Version None)
Quarter: 2011Q4

REPORT INFORMATION
  Report Type: 
  Country: None (occurrence: None)
  Receive Date: 20111014
  Receipt Date: 20111007
  Transmission Date: 20120403
  Serious: Yes (Hospitalization)
  Sender: FDA-Public Use
  Company Number: US-B.I. PHARMACEUTICALS,INC./RIDGEFIELD-2011-BP-12809BP

PATIENT
  Sex: Female
  Weight: 58.5 kg

DRUGS (17)
  1. NORVASC [Concomitant]
     Dosage: 2.5 MG
     Route: 048
  2. ALLEGRA [Concomitant]
     Dosage: 180 MG
     Route: 048
  3. LASIX [Concomitant]
     Dosage: 20 MG
     Route: 048
  4. DIOVAN [Concomitant]
     Dosage: 320 MG
     Route: 048
  5. ULTRAM [Concomitant]
     Dosage: 100 MG
     Route: 048
  6. FISH OIL CONCENTRATE [Concomitant]
     Dosage: 4000 MG
     Route: 048
  7. LIPITOR [Concomitant]
     Dosage: 10 MG
     Route: 048
  8. NIASPAN [Concomitant]
     Dosage: 1000 MG
     Route: 048
  9. MECLIZINE HCL [Concomitant]
     Dosage: 37.5 MG
     Route: 048
  10. ANUSOL HC [Concomitant]
     Dosage: 50 MG
     Route: 054
  11. TRICOR [Concomitant]
     Dosage: 145 MG
     Route: 048
  12. PRADAXA [Suspect]
     Dates: end: 20110317
  13. POTASSIUM CHLORIDE [Concomitant]
     Dosage: 10 MEQ
     Route: 048
  14. LANTUS [Concomitant]
     Dosage: STRENGTH:100/ML
  15. NOVOLOG [Concomitant]
     Dosage: STRENGTH:100/ML
  16. NEXIUM [Concomitant]
     Dosage: 40 MG
     Route: 048
  17. SOTALOL HCL [Concomitant]
     Dosage: 160 MG
     Route: 048

REACTIONS (2)
  - ANAEMIA [None]
  - LOWER GASTROINTESTINAL HAEMORRHAGE [None]
